FAERS Safety Report 7472209-4 (Version None)
Quarter: 2011Q2

REPORT INFORMATION
  Report Type: 
  Country: None (occurrence: None)
  Receive Date: 20110511
  Receipt Date: 20110311
  Transmission Date: 20111010
  Serious: No
  Sender: FDA-Public Use
  Company Number: A0917827A

PATIENT
  Age: 75 Year
  Sex: Female

DRUGS (9)
  1. METOPROLOL SUCCINATE [Concomitant]
  2. CALCIUM [Concomitant]
  3. VITAMIN D [Concomitant]
  4. VITAMIN C [Concomitant]
  5. METFORMIN HCL [Concomitant]
  6. AROMASIN [Concomitant]
  7. ASPIRIN [Concomitant]
  8. TYKERB [Suspect]
     Indication: BREAST CANCER
     Dosage: 1250MG PER DAY
     Route: 048
     Dates: start: 20110304, end: 20110307
  9. PRAVASTATIN [Concomitant]

REACTIONS (4)
  - MYALGIA [None]
  - VOMITING [None]
  - ABDOMINAL PAIN [None]
  - DIARRHOEA [None]
